FAERS Safety Report 5993524-7 (Version None)
Quarter: 2008Q4

REPORT INFORMATION
  Report Type: 
  Country: None (occurrence: None)
  Receive Date: 20081212
  Receipt Date: 20081201
  Transmission Date: 20090506
  Serious: Yes (Other)
  Sender: FDA-Public Use
  Company Number: US-JNJFOC-20081200757

PATIENT
  Sex: Female
  Weight: 125.19 kg

DRUGS (16)
  1. REMICADE [Suspect]
     Route: 042
  2. REMICADE [Suspect]
     Indication: RHEUMATOID ARTHRITIS
     Route: 042
  3. VERAPAMIL [Concomitant]
  4. FUROSIMIDE [Concomitant]
  5. COZAAR [Concomitant]
  6. PRILOSEC [Concomitant]
     Dosage: DAILY
  7. WARFARIN SODIUM [Concomitant]
  8. SPIRIVA [Concomitant]
     Route: 055
  9. VENTOLIN [Concomitant]
     Dosage: INTERVAL:PRN
     Route: 055
  10. NAPROSYN [Concomitant]
     Indication: PAIN
     Dosage: PRN
  11. FOLIC ACID [Concomitant]
  12. METHOTREXATE [Concomitant]
  13. METHYLPREDNISOLONE [Concomitant]
  14. HYCODAN [Concomitant]
     Indication: PAIN
     Dosage: DOSE 5/500 PRN
  15. FOSAMAX [Concomitant]
  16. VITAMIN D [Concomitant]

REACTIONS (2)
  - PULMONARY EMBOLISM [None]
  - UTERINE CANCER [None]
